FAERS Safety Report 4335410-4 (Version None)
Quarter: 2004Q2

REPORT INFORMATION
  Report Type: 
  Country: None (occurrence: None)
  Receive Date: 20040408
  Receipt Date: 20040408
  Transmission Date: 20050107
  Serious: Yes (Hospitalization)
  Sender: FDA-Public Use
  Company Number: None

PATIENT
  Age: 57 Year
  Sex: Male
  Weight: 108.9 kg

DRUGS (2)
  1. SIMVASTIIN [Suspect]
     Indication: HYPERLIPIDAEMIA
     Dosage: 80 MG,80 MG, HS,ORAL
     Route: 048
     Dates: start: 20040107, end: 20040222
  2. GEMFIBROZIL [Suspect]
     Indication: HYPERLIPIDAEMIA
     Dosage: 1200 MG, 600MG BID,ORAL
     Dates: start: 20040107, end: 20040222

REACTIONS (2)
  - BLOOD CREATINE PHOSPHOKINASE INCREASED [None]
  - MYALGIA [None]
